FAERS Safety Report 9935064 (Version 1)
Quarter: 2014Q1

REPORT INFORMATION
  Report Type: Spontaneous
  Country: US (occurrence: US)
  Receive Date: 20140228
  Receipt Date: 20140228
  Transmission Date: 20141002
  Serious: Yes (Other)
  Sender: FDA-Public Use
  Company Number: US-PFIZER INC-2014054262

PATIENT
  Age: 48 Year
  Sex: Female
  Weight: 64.4 kg

DRUGS (2)
  1. LYRICA [Suspect]
     Indication: FIBROMYALGIA
     Dosage: 150 MG, 2X/DAY
     Dates: start: 2000
  2. RELPAX [Suspect]
     Indication: MIGRAINE
     Dosage: 40 MG, AS NEEDED
     Dates: start: 2001

REACTIONS (4)
  - Intraocular pressure increased [Not Recovered/Not Resolved]
  - Eye disorder [Not Recovered/Not Resolved]
  - Visual acuity reduced [Not Recovered/Not Resolved]
  - Vision blurred [Not Recovered/Not Resolved]
